FAERS Safety Report 7344574-X (Version None)
Quarter: 2011Q1

REPORT INFORMATION
  Report Type: 
  Country: None (occurrence: None)
  Receive Date: 20110310
  Receipt Date: 20110307
  Transmission Date: 20110831
  Serious: Yes (Death, Hospitalization)
  Sender: FDA-Public Use
  Company Number: JP-ABBOTT-11P-087-0702413-00

PATIENT
  Sex: Female

DRUGS (6)
  1. METHOTREXATE [Suspect]
     Indication: RHEUMATOID ARTHRITIS
     Dosage: 6MG/WK
     Route: 048
     Dates: start: 20100517, end: 20101221
  2. MELOXICAM [Concomitant]
     Indication: RHEUMATOID ARTHRITIS
     Route: 048
     Dates: start: 20100803
  3. SALAZOSULFAPYRIDINE [Concomitant]
     Indication: RHEUMATOID ARTHRITIS
  4. HUMIRA [Suspect]
     Indication: RHEUMATOID ARTHRITIS
     Route: 058
     Dates: start: 20100826, end: 20101217
  5. LANSOPRAZOLE [Concomitant]
     Indication: RHEUMATOID ARTHRITIS
     Dosage: 30MG DAILY
     Route: 048
     Dates: start: 20100803
  6. PREDNISOLONE [Concomitant]
     Indication: RHEUMATOID ARTHRITIS
     Dosage: 3MG DAILY
     Route: 048
     Dates: start: 20100803

REACTIONS (1)
  - INTERSTITIAL LUNG DISEASE [None]
